FAERS Safety Report 11104190 (Version 2)
Quarter: 2015Q2

REPORT INFORMATION
  Report Type: Spontaneous
  Country: IT (occurrence: None)
  Receive Date: 20150507
  Receipt Date: 20150610
  Transmission Date: 20150821
  Serious: Yes (Hospitalization)
  Sender: FDA-Public Use
  Company Number: FK201502059

PATIENT
  Age: 75 Year
  Sex: Male
  Weight: 65 kg

DRUGS (9)
  1. CEFTRIAXON (MANUFACTURER UNKNOWN) (CEFTRIAXON-DINATRIUM) (CEFTRIAXON-DINATRIUM) [Suspect]
     Active Substance: CEFTRIAXONE
     Indication: PYREXIA
     Dosage: NOT OTHERWISE SPECIFIED
     Route: 042
     Dates: start: 20150321, end: 20150327
  2. TRIMETHOPRIM + SULFAMETHOXAZOLE (BACTRIM) [Concomitant]
  3. ACICLOVIR (ACICLOVIR) [Concomitant]
     Active Substance: ACYCLOVIR
  4. BISOPROLOL HEMIFUMARATE (BISOPROLOL FUMARATE) [Concomitant]
  5. PREDNISONE (PREDNISONE) [Concomitant]
     Active Substance: PREDNISONE
  6. EPOETIN ZETA (EPOETIN ZETA) [Concomitant]
  7. CIPROFLOXACIN (CIPROFLOXACIN) (CIPROFLOXACIN) [Suspect]
     Active Substance: CIPROFLOXACIN
     Indication: PYREXIA
     Route: 048
     Dates: start: 20150319, end: 20150327
  8. MYCOSTATIN [Concomitant]
     Active Substance: NYSTATIN
  9. CALCITRIOL (CALCITRIOL) [Concomitant]
     Active Substance: CALCITRIOL

REACTIONS (4)
  - Cough [None]
  - Neutropenia [None]
  - Hyperpyrexia [None]
  - Hypertransaminasaemia [None]

NARRATIVE: CASE EVENT DATE: 20150321
